FAERS Safety Report 12089984 (Version 1)
Quarter: 2016Q1

REPORT INFORMATION
  Report Type: Report from Study
  Country: BR (occurrence: BR)
  Receive Date: 20160218
  Receipt Date: 20160218
  Transmission Date: 20160526
  Serious: Yes (Other)
  Sender: FDA-Public Use
  Company Number: PHHY2016BR021107

PATIENT
  Sex: Female
  Weight: 84 kg

DRUGS (2)
  1. GLIFAGE [Concomitant]
     Active Substance: METFORMIN HYDROCHLORIDE
     Indication: PRODUCT USED FOR UNKNOWN INDICATION
     Route: 065
  2. GLIVEC [Suspect]
     Active Substance: IMATINIB MESYLATE
     Indication: CHRONIC MYELOID LEUKAEMIA
     Dosage: UNK UNK, QD
     Route: 065

REACTIONS (11)
  - Anaemia [Unknown]
  - Joint swelling [Unknown]
  - Hypertension [Unknown]
  - Fall [Unknown]
  - Joint injury [Unknown]
  - Depression [Unknown]
  - Peripheral swelling [Unknown]
  - Weight increased [Unknown]
  - Diabetes mellitus [Unknown]
  - Abdominal pain upper [Unknown]
  - Limb injury [Unknown]
